FAERS Safety Report 18944523 (Version 1)
Quarter: 2021Q1

REPORT INFORMATION
  Report Type: Spontaneous
  Country: US (occurrence: US)
  Receive Date: 20210226
  Receipt Date: 20210226
  Transmission Date: 20210420
  Serious: No
  Sender: FDA-Public Use
  Company Number: None

PATIENT
  Age: 59 Year
  Sex: Male
  Weight: 118.44 kg

DRUGS (10)
  1. FLONASE 50MCG/ACT [Concomitant]
  2. ABIRATERONE ACETATE. [Suspect]
     Active Substance: ABIRATERONE ACETATE
     Indication: PROSTATE CANCER
     Route: 048
     Dates: start: 20200331
  3. VITAMIN D 1.25MG [Concomitant]
  4. LOSARTAN 50MG [Concomitant]
     Active Substance: LOSARTAN
  5. FLOMAX 0.4MG [Concomitant]
  6. IBUPROFEN 100MG [Concomitant]
  7. ACETAMINOPHEN EXTRA STRENGTH [Concomitant]
     Active Substance: ACETAMINOPHEN
  8. PREDNISONE 5MG [Concomitant]
     Active Substance: PREDNISONE
  9. METOPROLOL TARTRATE. [Concomitant]
     Active Substance: METOPROLOL TARTRATE
  10. LUPRON DEPOT [Concomitant]
     Active Substance: LEUPROLIDE ACETATE

REACTIONS (2)
  - Blood pressure abnormal [None]
  - COVID-19 [None]

NARRATIVE: CASE EVENT DATE: 20210225
